FAERS Safety Report 7254013-5 (Version None)
Quarter: 2011Q1

REPORT INFORMATION
  Report Type: 
  Country: None (occurrence: None)
  Receive Date: 20110129
  Receipt Date: 20100311
  Transmission Date: 20110831
  Serious: No
  Sender: FDA-Public Use
  Company Number: US-ABBOTT-10P-163-0631642-00

PATIENT
  Sex: Female

DRUGS (2)
  1. HUMIRA [Suspect]
     Indication: CROHN'S DISEASE
     Dates: start: 20090601
  2. LABETALOL HCL [Concomitant]
     Indication: HYPERTENSION

REACTIONS (2)
  - NASOPHARYNGITIS [None]
  - PARANASAL SINUS HYPERSECRETION [None]
